FAERS Safety Report 7731988-9 (Version None)
Quarter: 2011Q3

REPORT INFORMATION
  Report Type: 
  Country: None (occurrence: None)
  Receive Date: 20110906
  Receipt Date: 20110721
  Transmission Date: 20111222
  Serious: No
  Sender: FDA-Public Use
  Company Number: US-AMGEN-USASP2011037172

PATIENT
  Sex: Female

DRUGS (12)
  1. PROPYLTHIOURACIL [Concomitant]
     Dosage: 2 MG, QD
  2. LORAZEPAM [Concomitant]
     Dosage: 1 MG, TID
  3. DILTIAZEM HYDROCHLORIDE [Concomitant]
     Dosage: 1 MG, QD
  4. PROLIA [Suspect]
     Indication: OSTEOPOROSIS POSTMENOPAUSAL
     Dosage: 60 MG, Q6MO
     Dates: start: 20110617
  5. PANTOPRAZOLE [Concomitant]
     Dosage: 1 MG, QD
  6. VITAMIN D [Concomitant]
     Dosage: 1 IU, QD
  7. PRISTIQ [Concomitant]
     Dosage: 1 MG, QD
  8. MULTIVITAMIN                       /00097801/ [Concomitant]
  9. CRESTOR [Concomitant]
     Dosage: 1 MG, QD
  10. ASPIRIN [Concomitant]
     Dosage: UNK UNK, QD
  11. FLEXERIL [Concomitant]
     Dosage: UNK UNK, PRN
  12. LISINOPRIL AND HYDROCHLOROTHIAZIDE [Concomitant]
     Dosage: UNK UNK, QD

REACTIONS (7)
  - GINGIVAL BLISTER [None]
  - RASH ERYTHEMATOUS [None]
  - BONE DENSITY ABNORMAL [None]
  - IMMUNODEFICIENCY [None]
  - FUNGAL SKIN INFECTION [None]
  - RASH PRURITIC [None]
  - GINGIVAL RECESSION [None]
